FAERS Safety Report 5986699-7 (Version None)
Quarter: 2008Q4

REPORT INFORMATION
  Report Type: 
  Country: None (occurrence: None)
  Receive Date: 20081209
  Receipt Date: 20080909
  Transmission Date: 20090506
  Serious: No
  Sender: FDA-Public Use
  Company Number: US-AMGEN-KDL294283

PATIENT
  Sex: Male
  Weight: 78.1 kg

DRUGS (5)
  1. ENBREL [Suspect]
     Indication: ANKYLOSING SPONDYLITIS
     Route: 058
     Dates: start: 20080606
  2. SOMA [Concomitant]
  3. COLCHICINE [Concomitant]
  4. VICODIN [Concomitant]
  5. NIPAXON [Concomitant]

REACTIONS (3)
  - INCREASED TENDENCY TO BRUISE [None]
  - INJECTION SITE HAEMATOMA [None]
  - INJECTION SITE HAEMORRHAGE [None]
